FAERS Safety Report 5637000-X (Version None)
Quarter: 2008Q1

REPORT INFORMATION
  Report Type: 
  Country: None (occurrence: None)
  Receive Date: 20080225
  Receipt Date: 20070501
  Transmission Date: 20080703
  Serious: No
  Sender: FDA-Public Use
  Company Number: US-BRISTOL-MYERS SQUIBB COMPANY-13766381

PATIENT
  Sex: Female

DRUGS (2)
  1. GLUCOPHAGE [Suspect]
  2. BYETTA [Suspect]

REACTIONS (7)
  - CONSTIPATION [None]
  - DIZZINESS [None]
  - FAECALOMA [None]
  - FATIGUE [None]
  - FEELING HOT [None]
  - HEADACHE [None]
  - NAUSEA [None]
